FAERS Safety Report 21489744 (Version 2)
Quarter: 2023Q4

REPORT INFORMATION
  Report Type: Spontaneous
  Country: US (occurrence: US)
  Receive Date: 20221021
  Receipt Date: 20231026
  Transmission Date: 20240110
  Serious: No
  Sender: FDA-Public Use
  Company Number: US-PHARMAESSENTIA CORPORATION-US-2022-PEC-000820

PATIENT
  Sex: Female

DRUGS (1)
  1. BESREMI [Suspect]
     Active Substance: ROPEGINTERFERON ALFA-2B-NJFT
     Indication: Iron deficiency anaemia
     Dosage: 300 MCG
     Route: 058
     Dates: start: 20220902

REACTIONS (4)
  - Anxiety [Unknown]
  - Off label use [Unknown]
  - Injection site pain [Unknown]
  - Nightmare [Unknown]

NARRATIVE: CASE EVENT DATE: 20220901
